FAERS Safety Report 7633171-4 (Version None)
Quarter: 2011Q3

REPORT INFORMATION
  Report Type: 
  Country: None (occurrence: None)
  Receive Date: 20110725
  Receipt Date: 20110721
  Transmission Date: 20111222
  Serious: Yes (Disabling, Other)
  Sender: FDA-Public Use
  Company Number: CO-PFIZER INC-2011166804

PATIENT
  Age: 88 Year
  Sex: Female

DRUGS (3)
  1. LYRICA [Suspect]
     Indication: HERPES ZOSTER
     Dosage: 150 MG, 2X/DAY EVERY 12 HOURS
     Route: 048
     Dates: start: 20110701, end: 20110701
  2. ACICLOVIR [Concomitant]
  3. LYRICA [Suspect]
     Dosage: 150 MG PER DAY
     Route: 048

REACTIONS (5)
  - ABASIA [None]
  - SPEECH DISORDER [None]
  - INCONTINENCE [None]
  - TONGUE PARALYSIS [None]
  - MOTOR DYSFUNCTION [None]
